FAERS Safety Report 5304436-6 (Version None)
Quarter: 2007Q2

REPORT INFORMATION
  Report Type: 
  Country: None (occurrence: None)
  Receive Date: 20070416
  Receipt Date: 20070404
  Transmission Date: 20071010
  Serious: Yes (Death, Life-Threatening)
  Sender: FDA-Public Use
  Company Number: 061128-0001056

PATIENT
  Age: 8 Day
  Sex: Female

DRUGS (1)
  1. INDOMETHACIN [Suspect]
     Indication: PATENT DUCTUS ARTERIOSUS
     Dosage: 0.7 MG;QD;IV
     Route: 042
     Dates: start: 20050312, end: 20050314

REACTIONS (7)
  - HAEMORRHAGE INTRACRANIAL [None]
  - HAEMORRHAGIC DIATHESIS [None]
  - HEPATIC HAEMORRHAGE [None]
  - NEONATAL DISORDER [None]
  - PERITONEAL HAEMORRHAGE [None]
  - SHOCK [None]
  - THROMBOCYTOPENIA NEONATAL [None]
